FAERS Safety Report 19310280 (Version 2)
Quarter: 2021Q2

REPORT INFORMATION
  Report Type: Report from Study
  Country: CA (occurrence: CA)
  Receive Date: 20210526
  Receipt Date: 20210610
  Transmission Date: 20210717
  Serious: Yes (Other)
  Sender: FDA-Public Use
  Company Number: CA-BAYER-2021-147327

PATIENT
  Age: 20 Year
  Sex: Female

DRUGS (1)
  1. KYLEENA [Suspect]
     Active Substance: LEVONORGESTREL
     Indication: CONTRACEPTION
     Dosage: 17.5  ?G PER DAY CON
     Route: 015
     Dates: start: 20210519, end: 20210520

REACTIONS (2)
  - Induced abortion haemorrhage [Recovered/Resolved]
  - Retained products of conception [Recovered/Resolved]

NARRATIVE: CASE EVENT DATE: 20210520
